FAERS Safety Report 12803895 (Version 1)
Quarter: 2016Q4

REPORT INFORMATION
  Report Type: Spontaneous
  Country: GR (occurrence: GR)
  Receive Date: 20161003
  Receipt Date: 20161003
  Transmission Date: 20170207
  Serious: Yes (Other)
  Sender: FDA-Public Use
  Company Number: GR-TEVA-695594ISR

PATIENT
  Age: 59 Year
  Sex: Male

DRUGS (1)
  1. COPAXONE [Suspect]
     Active Substance: GLATIRAMER ACETATE
     Indication: RELAPSING-REMITTING MULTIPLE SCLEROSIS
     Route: 058

REACTIONS (6)
  - Carotid artery occlusion [Unknown]
  - Multiple sclerosis relapse [Unknown]
  - Postictal paralysis [Unknown]
  - Retinal artery occlusion [Unknown]
  - Infarction [Unknown]
  - Optic neuritis [Unknown]
